FAERS Safety Report 9282103 (Version 1)
Quarter: 2013Q2

REPORT INFORMATION
  Report Type: Report from Study
  Country: TW (occurrence: TW)
  Receive Date: 20130510
  Receipt Date: 20130510
  Transmission Date: 20140414
  Serious: Yes (Death, Hospitalization)
  Sender: FDA-Public Use
  Company Number: TW-ROCHE-1223219

PATIENT
  Age: 67 Year
  Sex: Male
  Weight: 70 kg

DRUGS (6)
  1. BEVACIZUMAB [Suspect]
     Indication: COLORECTAL CANCER METASTATIC
     Route: 042
     Dates: start: 20130207, end: 20130222
  2. IRINOTECAN [Suspect]
     Indication: COLORECTAL CANCER METASTATIC
     Route: 042
     Dates: start: 20130207, end: 20130222
  3. FLUOROURACIL [Suspect]
     Indication: COLORECTAL CANCER METASTATIC
     Route: 042
     Dates: start: 20130207, end: 20130222
  4. FUROSEMIDE [Concomitant]
     Indication: OEDEMA
     Route: 048
     Dates: start: 20130307, end: 20130320
  5. ALPRAZOLAM [Concomitant]
     Indication: PROPHYLAXIS
     Dosage: EVERY NIGHT
     Route: 048
  6. ZOLPIDEM TARTRATE [Concomitant]
     Indication: INSOMNIA
     Dosage: EVERY NIGHT
     Route: 048
     Dates: end: 20130322

REACTIONS (3)
  - Sepsis [Fatal]
  - Neoplasm progression [Fatal]
  - Necrotising fasciitis [Not Recovered/Not Resolved]
